FAERS Safety Report 19901761 (Version 1)
Quarter: 2021Q3

REPORT INFORMATION
  Report Type: Spontaneous
  Country: DE (occurrence: DE)
  Receive Date: 20210930
  Receipt Date: 20210930
  Transmission Date: 20211014
  Serious: Yes (Other)
  Sender: FDA-Public Use
  Company Number: DE-MYLANLABS-2021M1066238

PATIENT
  Age: 4 Year
  Sex: Male

DRUGS (5)
  1. VALPROATE [Suspect]
     Active Substance: VALPROIC ACID
     Indication: EPILEPSY WITH MYOCLONIC-ATONIC SEIZURES
     Dosage: UNK
  2. ETHOSUXIMIDE. [Suspect]
     Active Substance: ETHOSUXIMIDE
     Indication: EPILEPSY WITH MYOCLONIC-ATONIC SEIZURES
     Dosage: UNK
     Dates: end: 201901
  3. LAMOTRIGINE. [Suspect]
     Active Substance: LAMOTRIGINE
     Indication: EPILEPSY WITH MYOCLONIC-ATONIC SEIZURES
     Dosage: UNK
     Dates: end: 201001
  4. TOPIRAMATE. [Suspect]
     Active Substance: TOPIRAMATE
     Indication: EPILEPSY WITH MYOCLONIC-ATONIC SEIZURES
     Dosage: UNK
  5. LEVETIRACETAM. [Suspect]
     Active Substance: LEVETIRACETAM
     Indication: EPILEPSY WITH MYOCLONIC-ATONIC SEIZURES
     Dosage: UNK

REACTIONS (4)
  - Encephalopathy [Unknown]
  - Drug ineffective [Unknown]
  - Off label use [Unknown]
  - Product administered to patient of inappropriate age [Unknown]
